FAERS Safety Report 7457215-8 (Version None)
Quarter: 2011Q2

REPORT INFORMATION
  Report Type: 
  Country: None (occurrence: None)
  Receive Date: 20110504
  Receipt Date: 20110502
  Transmission Date: 20111010
  Serious: No
  Sender: FDA-Public Use
  Company Number: US-PFIZER INC-2011094802

PATIENT
  Sex: Female
  Weight: 91 kg

DRUGS (6)
  1. BUPROPION HYDROCHLORIDE [Concomitant]
     Indication: BLOOD PRESSURE ABNORMAL
     Dosage: 150 MG, UNK
     Route: 048
  2. LYRICA [Suspect]
     Indication: FIBROMYALGIA
     Dosage: 200 MG, UNK
     Route: 048
     Dates: start: 20060101
  3. LUNESTA [Concomitant]
     Indication: SLEEP DISORDER
     Dosage: 2 MG, UNK
     Route: 048
  4. INDAPAMIDE [Concomitant]
     Indication: BLOOD PRESSURE ABNORMAL
     Dosage: 3.5 MG, UNK
     Route: 048
  5. LYRICA [Suspect]
     Indication: ARTHRITIS
  6. AMLODIPINE BESYLATE AND BENAZEPRIL HCL [Concomitant]
     Indication: BLOOD PRESSURE ABNORMAL
     Dosage: 5/20MG
     Route: 048

REACTIONS (1)
  - DRUG INEFFECTIVE [None]
